FAERS Safety Report 16905154 (Version 5)
Quarter: 2020Q1

REPORT INFORMATION
  Report Type: Spontaneous
  Country: US (occurrence: US)
  Receive Date: 20191010
  Receipt Date: 20200302
  Transmission Date: 20200409
  Serious: Yes (Other)
  Sender: FDA-Public Use
  Company Number: US-PFIZER INC-2017034173

PATIENT
  Age: 69 Year
  Sex: Female

DRUGS (1)
  1. IBRANCE [Suspect]
     Active Substance: PALBOCICLIB
     Indication: BREAST CANCER METASTATIC
     Dosage: 100 MG, CYCLIC (DAILY, 3 WEEKS ON AND 1 WEEK OFF)
     Route: 048

REACTIONS (7)
  - Fall [Unknown]
  - Osteoporosis [Unknown]
  - Malaise [Unknown]
  - Second primary malignancy [Unknown]
  - Neuroendocrine carcinoma [Unknown]
  - Contusion [Unknown]
  - Product dose omission [Unknown]
